FAERS Safety Report 5288110-0 (Version None)
Quarter: 2007Q2

REPORT INFORMATION
  Report Type: 
  Country: None (occurrence: None)
  Receive Date: 20070405
  Receipt Date: 20070330
  Transmission Date: 20071010
  Serious: Yes (Other)
  Sender: FDA-Public Use
  Company Number: 2006UW07931

PATIENT
  Age: 567 Month
  Sex: Female
  Weight: 93.2 kg

DRUGS (5)
  1. SEROQUEL [Suspect]
     Indication: SCHIZOPHRENIA
     Route: 048
     Dates: start: 20060305
  2. HALDOL [Concomitant]
     Dates: start: 19870101
  3. RISPERDAL [Concomitant]
     Dates: start: 19960101
  4. TRILAFON [Concomitant]
     Dates: start: 19860101
  5. ZYPREXA [Concomitant]
     Dates: start: 19980101

REACTIONS (2)
  - DIABETES MELLITUS NON-INSULIN-DEPENDENT [None]
  - TARDIVE DYSKINESIA [None]
